FAERS Safety Report 4524783-5 (Version None)
Quarter: 2004Q4

REPORT INFORMATION
  Report Type: 
  Country: None (occurrence: None)
  Receive Date: 20041208
  Receipt Date: 20041118
  Transmission Date: 20050328
  Serious: Yes (Hospitalization)
  Sender: FDA-Public Use
  Company Number: 2004-DE-05331DE

PATIENT
  Age: 43 Year
  Sex: Male

DRUGS (2)
  1. MICARDIS HCT [Suspect]
     Indication: HYPERTENSION
     Dosage: STRENGTH:  80MG TELMISARTAN, 12.5MG HYDROCHLOROTHIAZID (SEE TEXT) PO
     Route: 048
  2. DIURETIC (NR) [Concomitant]

REACTIONS (16)
  - ARTHRALGIA [None]
  - BLOOD CHOLESTEROL INCREASED [None]
  - BLOOD CREATINE PHOSPHOKINASE INCREASED [None]
  - BLOOD CREATININE INCREASED [None]
  - BLOOD PRESSURE INCREASED [None]
  - BLOOD TRIGLYCERIDES INCREASED [None]
  - CIRCULATORY COLLAPSE [None]
  - DIZZINESS [None]
  - DRUG ABUSER [None]
  - GLOMERULONEPHRITIS [None]
  - HYPERKALAEMIA [None]
  - LABORATORY TEST INTERFERENCE [None]
  - MUSCLE CRAMP [None]
  - MUSCLE DISORDER [None]
  - PAIN IN EXTREMITY [None]
  - RENAL FUNCTION TEST ABNORMAL [None]
